FAERS Safety Report 14953571 (Version 1)
Quarter: 2018Q2

REPORT INFORMATION
  Report Type: Spontaneous
  Country: US (occurrence: US)
  Receive Date: 20180509
  Receipt Date: 20180509
  Transmission Date: 20180711
  Serious: Yes (Disabling, Other)
  Sender: FDA-Public Use
  Company Number: None

PATIENT
  Age: 72 Year
  Sex: Female
  Weight: 72 kg

DRUGS (3)
  1. CELLCEPT [Suspect]
     Active Substance: MYCOPHENOLATE MOFETIL\MYCOPHENOLATE MOFETIL HYDROCHLORIDE
     Indication: ANAEMIA
     Dosage: ?          QUANTITY:.5 BREAK/CRUSH OPEN;OTHER ROUTE:IMPROPERLY BROKEN OPEN, CONTENTS FLEW?
     Dates: start: 20170705, end: 20170908
  2. LEVOTHROID [Concomitant]
     Active Substance: LEVOTHYROXINE SODIUM
  3. CELLCEPT [Suspect]
     Active Substance: MYCOPHENOLATE MOFETIL\MYCOPHENOLATE MOFETIL HYDROCHLORIDE
     Indication: PRODUCT USED FOR UNKNOWN INDICATION
     Dosage: ?          QUANTITY:.5 BREAK/CRUSH OPEN;OTHER ROUTE:IMPROPERLY BROKEN OPEN, CONTENTS FLEW?
     Dates: start: 20170705, end: 20170908

REACTIONS (17)
  - Oesophagitis [None]
  - Dry eye [None]
  - Eye pain [None]
  - Oropharyngeal pain [None]
  - Chemical eye injury [None]
  - Dyspnoea [None]
  - Oesophageal disorder [None]
  - Fatigue [None]
  - Heart rate irregular [None]
  - Product packaging issue [None]
  - Suspected counterfeit product [None]
  - Gastrointestinal haemorrhage [None]
  - Neoplasm [None]
  - Fear [None]
  - Accidental exposure to product [None]
  - Scar [None]
  - Gastrointestinal injury [None]

NARRATIVE: CASE EVENT DATE: 20170705
